FAERS Safety Report 24899470 (Version 2)
Quarter: 2025Q1

REPORT INFORMATION
  Report Type: Spontaneous
  Country: US (occurrence: US)
  Receive Date: 20250129
  Receipt Date: 20250227
  Transmission Date: 20250409
  Serious: No
  Sender: ROCHE
  Company Number: US-ROCHE-10000191069

PATIENT
  Sex: Female

DRUGS (1)
  1. LUCENTIS [Suspect]
     Active Substance: RANIBIZUMAB
     Indication: Neovascular age-related macular degeneration
     Route: 065

REACTIONS (4)
  - Pruritus [Recovered/Resolved]
  - Food allergy [Unknown]
  - Abdominal discomfort [Unknown]
  - Erythema [Recovered/Resolved]
